FAERS Safety Report 15036001 (Version 1)
Quarter: 2018Q2

REPORT INFORMATION
  Report Type: Spontaneous
  Country: DE (occurrence: DE)
  Receive Date: 20180620
  Receipt Date: 20180620
  Transmission Date: 20180711
  Serious: Yes (Death, Hospitalization)
  Sender: FDA-Public Use
  Company Number: PHHY2015DE177922

PATIENT
  Age: 63 Year
  Sex: Male
  Weight: 91 kg

DRUGS (11)
  1. NORVASC [Concomitant]
     Active Substance: AMLODIPINE BESYLATE
     Indication: HYPERTENSION
     Dosage: 5 MG, QD
     Route: 048
     Dates: start: 20050107
  2. OXALIPLATIN. [Suspect]
     Active Substance: OXALIPLATIN
     Indication: COLORECTAL CANCER
     Dosage: 100 MG, EVERY 8 DAYS
     Route: 042
     Dates: start: 20140224, end: 20140317
  3. IRINOTECAN [Suspect]
     Active Substance: IRINOTECAN
     Indication: COLORECTAL CANCER
     Dosage: 120 MG, QW
     Route: 042
     Dates: start: 20130729, end: 20131029
  4. IRINOTECAN [Suspect]
     Active Substance: IRINOTECAN
     Dosage: 160 MG, QD
     Route: 042
     Dates: start: 20130610
  5. AMLODIPIN [Concomitant]
     Active Substance: AMLODIPINE BESYLATE
     Indication: HYPERTENSION
     Route: 048
  6. 5-FLUOROURACIL [Suspect]
     Active Substance: FLUOROURACIL
     Indication: COLORECTAL CANCER
     Dosage: 4000 MG, QW
     Route: 042
     Dates: start: 20130610, end: 20131029
  7. 5-FLUOROURACIL [Suspect]
     Active Substance: FLUOROURACIL
     Dosage: 4000 MG, EVERY 8 DAYS
     Route: 042
     Dates: start: 20140224, end: 20140317
  8. BEVACIZUMAB. [Suspect]
     Active Substance: BEVACIZUMAB
     Indication: COLORECTAL CANCER
     Dosage: 450 MG, QW2
     Route: 042
     Dates: start: 20130610, end: 20140210
  9. FOLINIC ACID [Suspect]
     Active Substance: LEUCOVORIN
     Indication: COLORECTAL CANCER
     Dosage: 1000 MG, QW
     Route: 042
     Dates: start: 20130610, end: 20131029
  10. BEVACIZUMAB. [Suspect]
     Active Substance: BEVACIZUMAB
     Dosage: 450 MG, EVERY 15 DAYS
     Route: 042
     Dates: start: 20140224, end: 20140310
  11. ALLOPURINOL. [Concomitant]
     Active Substance: ALLOPURINOL
     Indication: HYPERCHOLESTEROLAEMIA
     Dosage: 300 MG, QD
     Route: 048

REACTIONS (6)
  - Haematemesis [Fatal]
  - Atelectasis [Recovered/Resolved]
  - Pulmonary haemorrhage [Fatal]
  - Necrotising colitis [Fatal]
  - Colorectal cancer [Fatal]
  - Oesophagobronchial fistula [Fatal]

NARRATIVE: CASE EVENT DATE: 20131210
